FAERS Safety Report 12195995 (Version 1)
Quarter: 2016Q1

REPORT INFORMATION
  Report Type: Spontaneous
  Country: AR (occurrence: AR)
  Receive Date: 20160321
  Receipt Date: 20160321
  Transmission Date: 20160526
  Serious: Yes (Other)
  Sender: FDA-Public Use
  Company Number: AR-MDT-ADR-2016-00537

PATIENT
  Age: 48 Year
  Sex: Male

DRUGS (1)
  1. LIORESAL [Suspect]
     Active Substance: BACLOFEN
     Dosage: 60 MG QD
     Route: 065
     Dates: start: 2003

REACTIONS (9)
  - General physical health deterioration [Unknown]
  - Abasia [Unknown]
  - Multiple sclerosis relapse [Unknown]
  - Vomiting [Unknown]
  - Dizziness [Unknown]
  - Muscle spasticity [Not Recovered/Not Resolved]
  - Nervous system disorder [Unknown]
  - Constipation [Not Recovered/Not Resolved]
  - Spinal disorder [Unknown]
